FAERS Safety Report 17158528 (Version 4)
Quarter: 2020Q4

REPORT INFORMATION
  Report Type: Spontaneous
  Country: US (occurrence: US)
  Receive Date: 20191216
  Receipt Date: 20201123
  Transmission Date: 20210113
  Serious: Yes (Other)
  Sender: FDA-Public Use
  Company Number: US-PFIZER INC-2018156931

PATIENT
  Age: 61 Year
  Sex: Male
  Weight: 99.79 kg

DRUGS (14)
  1. CADUET [Suspect]
     Active Substance: AMLODIPINE BESYLATE\ATORVASTATIN CALCIUM
     Indication: BLOOD PRESSURE ABNORMAL
  2. CELEBREX [Suspect]
     Active Substance: CELECOXIB
     Indication: EXOSTOSIS
     Dosage: 2 DF, DAILY (2 CAPSULES A DAY)
  3. CADUET [Suspect]
     Active Substance: AMLODIPINE BESYLATE\ATORVASTATIN CALCIUM
     Indication: BLOOD PRESSURE FLUCTUATION
  4. CADUET [Suspect]
     Active Substance: AMLODIPINE BESYLATE\ATORVASTATIN CALCIUM
     Indication: BLOOD CHOLESTEROL ABNORMAL
  5. CELEBREX [Suspect]
     Active Substance: CELECOXIB
     Indication: PAIN
     Dosage: 1 CAPSULE, 2X/DAY (1 CAPSULE IN MORNING, 1 CAPSULE AT NIGHT)
     Dates: end: 2019
  6. CELEBREX [Suspect]
     Active Substance: CELECOXIB
     Indication: INTERVERTEBRAL DISC DEGENERATION
  7. CADUET [Suspect]
     Active Substance: AMLODIPINE BESYLATE\ATORVASTATIN CALCIUM
     Indication: ANTIINFLAMMATORY THERAPY
     Dosage: 1 DF, 1X/DAY (5MG/40MG TABLET TAKEN ONCE EVERY NIGHT)
     Dates: end: 2019
  8. CELEBREX [Suspect]
     Active Substance: CELECOXIB
     Indication: NECK PAIN
  9. ATENOLOL. [Concomitant]
     Active Substance: ATENOLOL
     Indication: BLOOD PRESSURE ABNORMAL
     Dosage: UNK
  10. LIPITOR [Concomitant]
     Active Substance: ATORVASTATIN CALCIUM
     Dosage: UNK
  11. CADUET [Suspect]
     Active Substance: AMLODIPINE BESYLATE\ATORVASTATIN CALCIUM
     Indication: CARDIAC DISORDER
  12. CLONIDINE. [Concomitant]
     Active Substance: CLONIDINE
     Indication: BLOOD PRESSURE ABNORMAL
     Dosage: UNK, AS NEEDED (AS NEEDED WHEN HIS BLOOD PRESSURE IS OUT OF CONTROL)
  13. CELEBREX [Suspect]
     Active Substance: CELECOXIB
     Indication: SPINAL OSTEOARTHRITIS
  14. CELEBREX [Suspect]
     Active Substance: CELECOXIB
     Indication: BACK PAIN

REACTIONS (7)
  - Dementia [Unknown]
  - Visual impairment [Unknown]
  - Blood pressure abnormal [Unknown]
  - Memory impairment [Unknown]
  - Arthralgia [Not Recovered/Not Resolved]
  - Joint range of motion decreased [Not Recovered/Not Resolved]
  - Cognitive disorder [Unknown]

NARRATIVE: CASE EVENT DATE: 2019
